FAERS Safety Report 22609146 (Version 1)
Quarter: 2023Q2

REPORT INFORMATION
  Report Type: Spontaneous
  Country: UA (occurrence: UA)
  Receive Date: 20230616
  Receipt Date: 20230616
  Transmission Date: 20230722
  Serious: Yes (Other)
  Sender: FDA-Public Use
  Company Number: UA-AUROBINDO-AUR-APL-2023-042171

PATIENT
  Age: 69 Year

DRUGS (1)
  1. AMIODARONE [Suspect]
     Active Substance: AMIODARONE
     Indication: Atrial fibrillation
     Dosage: UNK
     Route: 065

REACTIONS (4)
  - Cataract nuclear [Unknown]
  - Exposure keratitis [Unknown]
  - Toxicity to various agents [Unknown]
  - Drug ineffective [Unknown]
